FAERS Safety Report 4742176-2 (Version None)
Quarter: 2005Q3

REPORT INFORMATION
  Report Type: 
  Country: None (occurrence: None)
  Receive Date: 20050811
  Receipt Date: 20050309
  Transmission Date: 20060218
  Serious: No
  Sender: FDA-Public Use
  Company Number: US-GLAXOSMITHKLINE-A0549051A

PATIENT
  Sex: Female

DRUGS (4)
  1. PAXIL CR [Suspect]
     Indication: PANIC DISORDER
     Dosage: 50MG PER DAY
     Route: 048
  2. ZYRTEC [Concomitant]
  3. TRILAFON [Concomitant]
  4. RHINOCORT [Concomitant]

REACTIONS (2)
  - MEDICATION ERROR [None]
  - PARAESTHESIA [None]
